FAERS Safety Report 8102601-6 (Version None)
Quarter: 2011Q4

REPORT INFORMATION
  Report Type: 
  Country: None (occurrence: None)
  Receive Date: 20111222
  Receipt Date: 20110829
  Transmission Date: 20120403
  Serious: Yes (Hospitalization)
  Sender: FDA-Public Use
  Company Number: UTC-009806

PATIENT
  Age: 72 Year
  Sex: Female
  Weight: 71.82 kg

DRUGS (2)
  1. TYVASO [Suspect]
     Indication: SYSTEMIC SCLEROSIS
     Dosage: 18 - 54 MICROGRAMS (4 IN 1 D), INHALATION
     Route: 055
     Dates: start: 20110718
  2. TYVASO [Suspect]
     Indication: COR PULMONALE CHRONIC
     Dosage: 18 - 54 MICROGRAMS (4 IN 1 D), INHALATION
     Route: 055
     Dates: start: 20110718

REACTIONS (9)
  - HAEMOPTYSIS [None]
  - PULMONARY OEDEMA [None]
  - ELECTROLYTE IMBALANCE [None]
  - HAEMORRHAGE INTRACRANIAL [None]
  - CONFUSIONAL STATE [None]
  - MYOCARDIAL INFARCTION [None]
  - HYPOPHAGIA [None]
  - ASTHENIA [None]
  - HYPOTENSION [None]
